FAERS Safety Report 8485873-8 (Version None)
Quarter: 2012Q3

REPORT INFORMATION
  Report Type: 
  Country: None (occurrence: None)
  Receive Date: 20120703
  Receipt Date: 20120628
  Transmission Date: 20120928
  Serious: Yes (Life-Threatening, Hospitalization, Other)
  Sender: FDA-Public Use
  Company Number: PHHY2012BR055960

PATIENT
  Sex: Male

DRUGS (16)
  1. METFORMIN HCL [Suspect]
     Indication: DIABETES MELLITUS
     Dosage: 2 DF, DAILY
     Route: 048
  2. AMLODIPINE BESYLATE [Suspect]
     Route: 048
  3. FLUTICASONE PROPIONATE/SALMETEROL [Concomitant]
     Dosage: 50/500MG
  4. NORIPURUM [Concomitant]
  5. BRILINTA [Concomitant]
  6. ATORVASTATIN [Concomitant]
  7. NPH INSULIN [Suspect]
     Indication: DIABETES MELLITUS
     Dosage: 20 IU MORNING
  8. ALDACTONE [Concomitant]
     Indication: HYPERTENSION
     Dosage: 50 MG, ONE TABLET DAILY
  9. ENALAPRIL MALEATE [Concomitant]
     Indication: HYPERTENSION
     Dosage: 10 MG ONE TABLET DAILY
  10. CRESTOR [Concomitant]
     Indication: BLOOD CHOLESTEROL INCREASED
     Dosage: 5 MG, ONE TABLET DAILY
  11. HYDRALAZINE HYDROCHLORIDE [Concomitant]
     Dosage: 50 MG,
  12. FUROSEMIDE [Concomitant]
     Dosage: 40 MG,
  13. ALPRAZOLAM [Concomitant]
  14. NPH INSULIN [Suspect]
     Dosage: 15 IU, AT NIGHT
  15. CONCOR [Concomitant]
     Dosage: 5 MG ONE TABLET DAILY
  16. SOMALGIN [Concomitant]
     Dosage: 81 MG, ONE TABLET DAILY

REACTIONS (9)
  - RENAL FAILURE [None]
  - MYOCARDIAL INFARCTION [None]
  - INTESTINAL ISCHAEMIA [None]
  - PERIPHERAL ISCHAEMIA [None]
  - COMA [None]
  - CARDIOGENIC SHOCK [None]
  - EMBOLISM ARTERIAL [None]
  - RESPIRATORY TRACT INFECTION [None]
  - INFECTION [None]
